FAERS Safety Report 11944907 (Version 1)
Quarter: 2016Q1

REPORT INFORMATION
  Report Type: Spontaneous
  Country: US (occurrence: US)
  Receive Date: 20160125
  Receipt Date: 20160125
  Transmission Date: 20160526
  Serious: No
  Sender: FDA-Public Use
  Company Number: US-PFIZER INC-2016036312

PATIENT
  Sex: Male

DRUGS (2)
  1. NEURONTIN [Suspect]
     Active Substance: GABAPENTIN
  2. CELEBREX [Suspect]
     Active Substance: CELECOXIB

REACTIONS (1)
  - Drug ineffective [Unknown]
